FAERS Safety Report 8620371-X (Version None)
Quarter: 2012Q3

REPORT INFORMATION
  Report Type: 
  Country: None (occurrence: None)
  Receive Date: 20120824
  Receipt Date: 20120821
  Transmission Date: 20120928
  Serious: Yes (Other)
  Sender: FDA-Public Use
  Company Number: US-VIIV HEALTHCARE LIMITED-A0990445A

PATIENT
  Sex: Male

DRUGS (5)
  1. ZIAGEN [Suspect]
     Indication: HIV INFECTION
     Route: 048
     Dates: start: 20120501
  2. NIFEDIPINE [Concomitant]
     Indication: HYPERTENSION
     Dates: start: 20120601
  3. EPZICOM [Concomitant]
  4. LIPITOR [Concomitant]
     Indication: LIPIDS
     Dates: start: 20120803
  5. ISENTRESS [Concomitant]

REACTIONS (2)
  - ANGIOEDEMA [None]
  - HYPERSENSITIVITY [None]
